FAERS Safety Report 9511034 (Version 1)
Quarter: 2013Q1

REPORT INFORMATION
  Report Type: Spontaneous
  Country: US (occurrence: None)
  Receive Date: 20130305
  Receipt Date: 20130305
  Transmission Date: 20140127
  Serious: Yes (Other)
  Sender: FDA-Public Use
  Company Number: 163-21880-12021207

PATIENT
  Sex: Male

DRUGS (11)
  1. REVLIMID (LENALIDOMIDE) (15 MILLIGRAM, CAPSULES) [Suspect]
     Indication: PLASMA CELL MYELOMA
     Dosage: 1 IN 1 D
     Route: 048
     Dates: start: 20120209
  2. TOPROL XL (METPROLOL SUCCINATE) (UNKNOWN) [Concomitant]
  3. ASPIRIN (ACETYLSALICYLIC ACID) (UNKNOWN) (ACETYLSALICYLIC ACID) [Concomitant]
  4. DEXAMETHASONE (DEXAMETHASONE) (UNKNOWN) [Concomitant]
  5. NEXIUM (ESOMEPRAZOLE) (UNKNOWN) [Concomitant]
  6. VICODIN (VICODIN) (UNKNOWN) [Concomitant]
  7. AVODART (DUTASTERIDE) (UNKNOWN) [Concomitant]
  8. CENTRUM SILVER (CENTRUM SILVER) (UNKNOWN) [Concomitant]
  9. DOCUSATE (DOCUSATE) (UNKNOWN) [Concomitant]
  10. VITAMIN C [Concomitant]
  11. VITAMIN E (TOCOPHEROL) (UNKNOWN) [Concomitant]

REACTIONS (2)
  - Thrombosis [None]
  - Oedema peripheral [None]
